FAERS Safety Report 6146443-X (Version None)
Quarter: 2009Q2

REPORT INFORMATION
  Report Type: 
  Country: None (occurrence: None)
  Receive Date: 20090407
  Receipt Date: 20090330
  Transmission Date: 20091009
  Serious: Yes (Congenital Anomaly)
  Sender: FDA-Public Use
  Company Number: A0748189A

PATIENT

DRUGS (9)
  1. PAXIL [Suspect]
     Indication: DRUG USE FOR UNKNOWN INDICATION
  2. AMOXICILLIN [Concomitant]
     Dates: start: 20030429
  3. VITAMIN TAB [Concomitant]
  4. ALLEGRA [Concomitant]
     Dates: start: 20030716
  5. MAGNESIUM SULFATE [Concomitant]
     Route: 042
     Dates: start: 20031101
  6. FLAX SEED [Concomitant]
  7. FENUGREEK [Concomitant]
  8. FISH OIL [Concomitant]
  9. MILK THISTLE [Concomitant]

REACTIONS (5)
  - ANAL ATRESIA [None]
  - APPENDIX DISORDER [None]
  - DRUG EXPOSURE DURING PREGNANCY [None]
  - DYSPEPSIA [None]
  - GASTROSCHISIS [None]
